FAERS Safety Report 13675750 (Version 3)
Quarter: 2017Q3

REPORT INFORMATION
  Report Type: Spontaneous
  Country: US (occurrence: US)
  Receive Date: 20170621
  Receipt Date: 20170821
  Transmission Date: 20171127
  Serious: Yes (Other)
  Sender: FDA-Public Use
  Company Number: US-009507513-1706USA007069

PATIENT
  Age: 13 Year
  Sex: Female

DRUGS (6)
  1. ZOLINZA [Suspect]
     Active Substance: VORINOSTAT
     Indication: METASTASES TO BONE
  2. ZOLINZA [Suspect]
     Active Substance: VORINOSTAT
     Indication: PALLIATIVE CARE
  3. DECITABINE. [Suspect]
     Active Substance: DECITABINE
     Indication: PALLIATIVE CARE
  4. ZOLINZA [Suspect]
     Active Substance: VORINOSTAT
     Indication: NEUROBLASTOMA
     Dosage: 100 MG/M2/D FOR 14D/CYCLE IN A 28-DAY CYCLE
     Route: 048
  5. DECITABINE. [Suspect]
     Active Substance: DECITABINE
     Indication: NEUROBLASTOMA
     Dosage: 20 MG/M2/D X 5 D/CYCLE
  6. DECITABINE. [Suspect]
     Active Substance: DECITABINE
     Indication: METASTASES TO BONE

REACTIONS (3)
  - Bone marrow failure [Unknown]
  - Pancytopenia [Recovering/Resolving]
  - Off label use [Unknown]
